FAERS Safety Report 21826006 (Version 2)
Quarter: 2024Q1

REPORT INFORMATION
  Report Type: Spontaneous
  Country: NL (occurrence: NL)
  Receive Date: 20230106
  Receipt Date: 20240318
  Transmission Date: 20240410
  Serious: Yes (Other)
  Sender: FDA-Public Use
  Company Number: NL-PFIZER INC-202200701638

PATIENT

DRUGS (9)
  1. BORTEZOMIB [Suspect]
     Active Substance: BORTEZOMIB
     Indication: Glomerulonephritis membranous
     Dosage: UNK
     Route: 065
     Dates: start: 20190528
  2. DEXAMETHASONE [Suspect]
     Active Substance: DEXAMETHASONE
     Indication: Glomerulonephritis membranous
     Dosage: UNK
     Route: 065
     Dates: start: 20190528
  3. PREDNISOLONE [Suspect]
     Active Substance: PREDNISOLONE
     Indication: Glomerulonephritis membranous
     Dosage: UNK
     Route: 065
     Dates: start: 201606
  4. RITUXIMAB [Suspect]
     Active Substance: RITUXIMAB
     Indication: Glomerulonephritis membranous
     Dosage: 2X1 G
     Route: 042
  5. RITUXIMAB [Suspect]
     Active Substance: RITUXIMAB
     Dosage: UNK
     Route: 065
     Dates: start: 201606
  6. RITUXIMAB [Suspect]
     Active Substance: RITUXIMAB
     Route: 042
  7. MYCOPHENOLATE MOFETIL [Suspect]
     Active Substance: MYCOPHENOLATE MOFETIL
     Indication: Glomerulonephritis membranous
     Dosage: UNK
     Route: 065
     Dates: start: 201606
  8. CYCLOPHOSPHAMIDE [Suspect]
     Active Substance: CYCLOPHOSPHAMIDE
     Indication: Glomerulonephritis membranous
     Dosage: 1.5 MG/KG
     Route: 048
     Dates: start: 20180907
  9. DARATUMUMAB [Suspect]
     Active Substance: DARATUMUMAB
     Indication: Glomerulonephritis membranous
     Dosage: 16 MG/KG, WEEKLY
     Route: 042
     Dates: start: 20200623

REACTIONS (5)
  - Drug ineffective [Unknown]
  - Off label use [Unknown]
  - Autoimmune disorder [Unknown]
  - Neuropathy peripheral [Unknown]
  - Leukopenia [Unknown]

NARRATIVE: CASE EVENT DATE: 20181001
